FAERS Safety Report 25930800 (Version 4)
Quarter: 2025Q4

REPORT INFORMATION
  Report Type: Spontaneous
  Country: JP (occurrence: JP)
  Receive Date: 20251016
  Receipt Date: 20251118
  Transmission Date: 20260117
  Serious: Yes (Hospitalization, Other)
  Sender: GILEAD
  Company Number: JP-GILEAD-2025-0732604

PATIENT
  Age: 74 Year
  Sex: Male

DRUGS (9)
  1. YESCARTA [Suspect]
     Active Substance: AXICABTAGENE CILOLEUCEL
     Indication: Diffuse large B-cell lymphoma recurrent
     Dosage: UNK
     Route: 041
  2. VEMLIDY [Concomitant]
     Active Substance: TENOFOVIR ALAFENAMIDE FUMARATE
  3. ESOMEPRAZOLE MAGNESIUM [Concomitant]
     Active Substance: ESOMEPRAZOLE MAGNESIUM
  4. MAGNESIUM OXIDE [Concomitant]
     Active Substance: MAGNESIUM OXIDE
  5. ELDECALCITOL [Concomitant]
     Active Substance: ELDECALCITOL
  6. ACYCLOVIR [Concomitant]
     Active Substance: ACYCLOVIR
  7. SULFAMETHOXAZOLE\TRIMETHOPRIM [Concomitant]
     Active Substance: SULFAMETHOXAZOLE\TRIMETHOPRIM
  8. CYCLOPHOSPHAMIDE [Concomitant]
     Active Substance: CYCLOPHOSPHAMIDE
     Indication: Lymphodepletion
  9. FLUDARABINE PHOSPHATE [Concomitant]
     Active Substance: FLUDARABINE PHOSPHATE
     Indication: Lymphodepletion

REACTIONS (10)
  - Haemorrhagic pneumonia [Not Recovered/Not Resolved]
  - Pneumonia necrotising [Not Recovered/Not Resolved]
  - Lung abscess [Recovering/Resolving]
  - Pulmonary alveolar haemorrhage [Unknown]
  - Interstitial lung disease [Not Recovered/Not Resolved]
  - Septic shock [Unknown]
  - Cytokine release syndrome [Recovered/Resolved]
  - Neutrophil count decreased [Recovered/Resolved]
  - Platelet count decreased [Not Recovered/Not Resolved]
  - Anaemia [Not Recovered/Not Resolved]
